FAERS Safety Report 7779884-5 (Version None)
Quarter: 2011Q3

REPORT INFORMATION
  Report Type: 
  Country: None (occurrence: None)
  Receive Date: 20110927
  Receipt Date: 20110322
  Transmission Date: 20111222
  Serious: No
  Sender: FDA-Public Use
  Company Number: US-ASTRAZENECA-2011SE05426

PATIENT
  Age: 51 Year
  Sex: Male
  Weight: 74.8 kg

DRUGS (8)
  1. SEROQUEL [Suspect]
     Indication: BIPOLAR DISORDER
     Route: 048
     Dates: start: 20090101, end: 20090101
  2. VENTOLIN DS [Concomitant]
  3. LITHIUM [Concomitant]
  4. MELOXICAM [Concomitant]
     Indication: ARTHRITIS
  5. SEROQUEL [Suspect]
     Route: 048
     Dates: end: 20110101
  6. SEROQUEL [Suspect]
     Route: 048
     Dates: start: 20110101
  7. BENZONATATE [Concomitant]
  8. WELLBUTRIN [Concomitant]

REACTIONS (8)
  - JOINT INJURY [None]
  - WEIGHT INCREASED [None]
  - ANXIETY [None]
  - FALL [None]
  - DRUG INEFFECTIVE [None]
  - MALAISE [None]
  - BRONCHITIS [None]
  - INSOMNIA [None]
